FAERS Safety Report 7243649-3 (Version None)
Quarter: 2011Q1

REPORT INFORMATION
  Report Type: 
  Country: None (occurrence: None)
  Receive Date: 20110125
  Receipt Date: 20110117
  Transmission Date: 20110831
  Serious: Yes (Hospitalization)
  Sender: FDA-Public Use
  Company Number: PHHO2010US12110

PATIENT
  Sex: Male
  Weight: 123.36 kg

DRUGS (20)
  1. BLINDED ALISKIREN [Suspect]
     Dosage: CODE NOT BROKEN
     Route: 048
     Dates: start: 20100518, end: 20100723
  2. BLINDED NO TREATMENT RECEIVED [Suspect]
     Dosage: CODE NOT BROKEN
     Route: 048
     Dates: start: 20100518, end: 20100723
  3. BLINDED NO TREATMENT RECEIVED [Suspect]
     Dosage: CODE NOT BROKEN
     Route: 048
     Dates: start: 20100729
  4. KLOR-CON [Concomitant]
  5. VITAMIN D [Concomitant]
  6. BLINDED ALISKIREN [Suspect]
     Dosage: NO TREATMENT
     Dates: start: 20100724, end: 20100728
  7. COMPARATOR ENALAPRIL [Suspect]
     Indication: CARDIAC FAILURE
  8. WARFARIN SODIUM [Concomitant]
  9. CARVEDILOL [Concomitant]
  10. AMIODARONE [Concomitant]
  11. BLINDED ENALAPRIL [Suspect]
     Dosage: CODE NOT BROKEN
     Route: 048
     Dates: start: 20100518, end: 20100723
  12. COUMADIN [Concomitant]
  13. BLINDED ENALAPRIL [Suspect]
     Dosage: NO TREATMENT
     Dates: start: 20100724, end: 20100728
  14. BLINDED ALISKIREN [Suspect]
     Dosage: CODE NOT BROKEN
     Route: 048
     Dates: start: 20100729
  15. ALISKIREN [Suspect]
     Indication: CARDIAC FAILURE
  16. NIASPAN [Concomitant]
  17. BLINDED ENALAPRIL [Suspect]
     Dosage: CODE NOT BROKEN
     Route: 048
     Dates: start: 20100729
  18. SPIRONOLACTONE [Concomitant]
  19. BLINDED NO TREATMENT RECEIVED [Suspect]
     Dosage: NO TREATMENT
     Dates: start: 20100724, end: 20100728
  20. TORSEMIDE [Concomitant]

REACTIONS (6)
  - CATHETERISATION CARDIAC [None]
  - CONCOMITANT DISEASE PROGRESSION [None]
  - CARDIAC FAILURE [None]
  - ATRIAL FIBRILLATION [None]
  - CORONARY ARTERY DISEASE [None]
  - ATRIAL FLUTTER [None]
